FAERS Safety Report 4390913-1 (Version None)
Quarter: 2004Q3

REPORT INFORMATION
  Report Type: 
  Country: None (occurrence: None)
  Receive Date: 20040707
  Receipt Date: 20040519
  Transmission Date: 20050211
  Serious: Yes (Life-Threatening, Other)
  Sender: FDA-Public Use
  Company Number: 200412036FR

PATIENT
  Age: 35 Year
  Sex: Male

DRUGS (7)
  1. PROFENID [Suspect]
     Route: 048
     Dates: start: 20040421, end: 20040429
  2. LOVENOX [Suspect]
     Route: 058
     Dates: start: 20040421, end: 20040429
  3. ACTISKENAN [Suspect]
     Route: 048
     Dates: start: 20040421, end: 20040428
  4. ACUPAN [Concomitant]
  5. DAFALGAN [Concomitant]
     Route: 048
  6. SPECIAFOLDINE [Concomitant]
     Route: 048
  7. FUMAFER [Concomitant]
     Route: 048

REACTIONS (7)
  - ANAEMIA [None]
  - HAEMATEMESIS [None]
  - MALLORY-WEISS SYNDROME [None]
  - NAUSEA [None]
  - PHLEBOTHROMBOSIS [None]
  - POST PROCEDURAL COMPLICATION [None]
  - VOMITING [None]
